FAERS Safety Report 5974339-2 (Version None)
Quarter: 2008Q4

REPORT INFORMATION
  Report Type: 
  Country: None (occurrence: None)
  Receive Date: 20081201
  Receipt Date: 20081126
  Transmission Date: 20090506
  Serious: Yes (Other)
  Sender: FDA-Public Use
  Company Number: US-PFIZER INC-2008088180

PATIENT
  Sex: Male
  Weight: 88.5 kg

DRUGS (9)
  1. GEODON [Suspect]
     Indication: ATTENTION DEFICIT/HYPERACTIVITY DISORDER
     Dates: start: 20080101, end: 20080703
  2. GEODON [Suspect]
     Indication: OBSESSIVE-COMPULSIVE DISORDER
  3. GEODON [Suspect]
     Indication: MAJOR DEPRESSION
  4. GEODON [Suspect]
     Indication: MENTAL RETARDATION
  5. ADDERALL 10 [Concomitant]
  6. ANAFRANIL [Concomitant]
  7. STRATTERA [Concomitant]
  8. KLONOPIN [Concomitant]
     Indication: GENERALISED ANXIETY DISORDER
  9. LEXAPRO [Concomitant]

REACTIONS (8)
  - DRUG TOXICITY [None]
  - DYSSTASIA [None]
  - FALL [None]
  - FATIGUE [None]
  - FEELING ABNORMAL [None]
  - FEELING DRUNK [None]
  - IMPAIRED DRIVING ABILITY [None]
  - INSOMNIA [None]
